FAERS Safety Report 13363831 (Version 2)
Quarter: 2017Q2

REPORT INFORMATION
  Report Type: Spontaneous
  Country: US (occurrence: US)
  Receive Date: 20170323
  Receipt Date: 20170419
  Transmission Date: 20170830
  Serious: Yes (Other)
  Sender: FDA-Public Use
  Company Number: US-PFIZER INC-2017111216

PATIENT
  Age: 65 Year
  Sex: Female
  Weight: 82.91 kg

DRUGS (185)
  1. CYMBALTA [Suspect]
     Active Substance: DULOXETINE HYDROCHLORIDE
     Indication: OSTEOARTHRITIS
     Dosage: 60 MG, DAILY
     Route: 048
     Dates: start: 20120613, end: 20140226
  2. CYMBALTA [Suspect]
     Active Substance: DULOXETINE HYDROCHLORIDE
     Indication: ANKYLOSING SPONDYLITIS
     Dosage: 60 MG, 1X/DAY (NIGHTLY)
     Route: 048
  3. ASPIRIN. [Concomitant]
     Active Substance: ASPIRIN
     Dosage: 81 MG, DAILY
     Route: 048
  4. ZESTRIL [Concomitant]
     Active Substance: LISINOPRIL
     Dosage: 30 MG, DAILY
     Route: 048
  5. ZESTRIL [Concomitant]
     Active Substance: LISINOPRIL
     Dosage: 20 MG, DAILY
  6. OXYCONTIN [Concomitant]
     Active Substance: OXYCODONE HYDROCHLORIDE
     Dosage: 15 MG, 2X/DAY (EVERY 12 HOURS)
     Route: 048
     Dates: start: 20091207, end: 20111122
  7. OXYCONTIN [Concomitant]
     Active Substance: OXYCODONE HYDROCHLORIDE
     Dosage: 45 MG, DAILY (15MG, TAKE 2 IN AM AND 1 HS)
     Route: 048
     Dates: start: 20111129, end: 20120104
  8. LIDODERM [Concomitant]
     Active Substance: LIDOCAINE
     Dosage: UNK (5% EXTERNAL PATCH)(USE AS DIRECTED ON PACKAGE)
     Dates: start: 20060329, end: 20090710
  9. HYDROCODONE BITARTRATE AND ACETAMINOPHEN [Concomitant]
     Active Substance: ACETAMINOPHEN\HYDROCODONE BITARTRATE
     Dosage: 2 DF, 2X/DAY[HYDROCODONE BITARTRATE:5MG],[PARACETAMOL:500MG]
     Dates: start: 20090922, end: 20091222
  10. MORPHINE SULFATE. [Concomitant]
     Active Substance: MORPHINE SULFATE
     Dosage: 30 MG, 2X/DAY
     Route: 048
     Dates: start: 20150306
  11. TRIAMCINOLONE ACETONIDE. [Concomitant]
     Active Substance: TRIAMCINOLONE ACETONIDE
     Dosage: UNK UNK, DAILY (APPLY 2-3 TIMES DAILY TO AFFECTED AREA(S))
     Dates: start: 20131223
  12. ACIPHEX [Concomitant]
     Active Substance: RABEPRAZOLE SODIUM
     Dosage: 20 MG, DAILY
     Route: 048
     Dates: start: 20071123, end: 20110605
  13. CELEBREX [Concomitant]
     Active Substance: CELECOXIB
     Dosage: UNK
     Route: 048
     Dates: end: 20130213
  14. CEPHALEXIN. [Concomitant]
     Active Substance: CEPHALEXIN
     Dosage: 500 MG, 3X/DAY
     Route: 048
     Dates: start: 20130605, end: 20130917
  15. GLUCOSAMINE CHONDROITIN [Concomitant]
     Active Substance: CHONDROITIN SULFATE (BOVINE)\GLUCOSAMINE HYDROCHLORIDE
     Dosage: UNK UNK, 2X/DAY (BID)
     Dates: start: 20080520, end: 20081111
  16. LORTAB [Concomitant]
     Active Substance: ACETAMINOPHEN\HYDROCODONE BITARTRATE
     Indication: PAIN
     Dosage: 1 DF, AS NEEDED (1 TABLET 4 TIMES DAILY PRN) [(PARACETAMOL: 10 MG),(HYDROCODONE BITARTRATE: 500 MG)]
     Route: 048
     Dates: start: 20090731, end: 20090821
  17. DARVOCET-N 100 [Concomitant]
     Active Substance: ACETAMINOPHEN\PROPOXYPHENE NAPSYLATE
     Dosage: 1 DF, AS NEEDED (TAKE 1 TABLET 4 TIMES DAILY)(DEXTROPROPOXYPHENE NAPSILATE:100MG),(PARACETAMOL:650MG
     Dates: start: 20050328, end: 20060627
  18. VITAMIN B12 [Concomitant]
     Active Substance: CYANOCOBALAMIN
     Dosage: 211-946 PG/ML
  19. POTASSIUM CHLORIDE. [Concomitant]
     Active Substance: POTASSIUM CHLORIDE
     Dosage: 20 MEQ, DAILY (EVERY DAY WITH FOOD)
     Route: 048
     Dates: start: 20160113
  20. LYRICA [Suspect]
     Active Substance: PREGABALIN
     Indication: PAIN
     Dosage: 100 MG, 3X/DAY (TID)
     Route: 048
  21. NORVASC [Concomitant]
     Active Substance: AMLODIPINE BESYLATE
     Dosage: 10 MG, DAILY (TAKE 2 TABLETS EVERYDAY)
     Route: 048
     Dates: start: 20160113
  22. LIPITOR [Concomitant]
     Active Substance: ATORVASTATIN CALCIUM
     Dosage: 80 MG, 1X/DAY (NIGHTLY)
     Route: 048
  23. LIPITOR [Concomitant]
     Active Substance: ATORVASTATIN CALCIUM
     Dosage: 80 MG, 1X/DAY (NIGHTLY)
     Route: 048
     Dates: start: 20160113
  24. ZEBETA [Concomitant]
     Active Substance: BISOPROLOL FUMARATE
     Dosage: 5 MG, DAILY (EVERY DAY)
     Route: 048
     Dates: start: 20131120
  25. ZETIA [Concomitant]
     Active Substance: EZETIMIBE
     Dosage: 10 MG, DAILY
     Route: 048
     Dates: start: 20071123, end: 20140321
  26. NITROSTAT [Concomitant]
     Active Substance: NITROGLYCERIN
     Dosage: 0.4 MG,AS NEEDED (PLACE1 TAB AT 1ST SIGN OF ATTACK;MAY REPEAT EVERY 5MIN UPTO 3 TABS)
     Route: 060
     Dates: start: 20161121
  27. PROTONIX [Concomitant]
     Active Substance: PANTOPRAZOLE SODIUM
     Dosage: 40 MG, DAILY
     Route: 048
  28. MIRALAX [Concomitant]
     Active Substance: POLYETHYLENE GLYCOL 3350
     Dosage: 17 G, AS NEEDED (DAILY)
     Route: 048
  29. AUGMENTIN [Concomitant]
     Active Substance: AMOXICILLIN\CLAVULANATE POTASSIUM
     Dosage: 1 DF, 2X/DAY ([AMOXICILLIN SODIUM: 875MG]- [CLAVULANATE POTASSIUM: 125 MG])
     Route: 048
  30. GLUCOSAMINE COMPLEX [Concomitant]
     Active Substance: GLUCOSAMINE\GLUCOSAMINE SULFATE
     Dosage: 1 DF, 3X/DAY (1500 COMPLEX ORAL CAPSULE)
     Route: 048
  31. METFORMIN HCL [Concomitant]
     Active Substance: METFORMIN HYDROCHLORIDE
     Dosage: 500 MG, 2X/DAY (2 TIMES EVERY DAY WITH MORNING AND EVENING MEALS)
     Route: 048
     Dates: start: 20160113
  32. K-DUR [Concomitant]
     Active Substance: POTASSIUM CHLORIDE
     Dosage: 20 MEQ, 3X/DAY
     Route: 048
     Dates: start: 20091207
  33. BIOTIN [Concomitant]
     Active Substance: BIOTIN
     Dosage: UNK
     Route: 048
     Dates: end: 20080811
  34. CRESTOR [Concomitant]
     Active Substance: ROSUVASTATIN CALCIUM
     Dosage: 10 MG, DAILY
     Route: 048
     Dates: start: 20070608, end: 20101206
  35. FISH OIL [Concomitant]
     Active Substance: FISH OIL
     Dosage: 1 DF, DAILY (1 CAPSULE)
     Dates: start: 20071123, end: 20150311
  36. HYZAAR [Concomitant]
     Active Substance: HYDROCHLOROTHIAZIDE\LOSARTAN POTASSIUM
     Dosage: 1 DF, DAILY [(LOSARTAN POTASSIUM: 100MG), (HYDROCHLOROTHIAZIDE: 25 MG)]
     Route: 048
     Dates: start: 20071123, end: 20080811
  37. LATISSE [Concomitant]
     Active Substance: BIMATOPROST
     Dosage: UNK UNK, 1X/DAY (0.03% EXTERNAL SOLUTION)(NO LOWER LASHES)
     Dates: start: 20110330, end: 20110613
  38. MYCOPHENOLATE MOFETIL. [Concomitant]
     Active Substance: MYCOPHENOLATE MOFETIL
     Dosage: 1500 MG, 2X/DAY (3 TABLETS TWICE DAILY)
     Route: 048
     Dates: start: 20130917, end: 20131120
  39. NEXIUM [Concomitant]
     Active Substance: ESOMEPRAZOLE MAGNESIUM
     Dosage: 40 MG, DAILY
     Route: 048
     Dates: start: 20110211, end: 20110304
  40. VITAMIN E [Concomitant]
     Active Substance: .ALPHA.-TOCOPHEROL
     Dosage: 4000 IU, DAILY
     Route: 048
     Dates: start: 20061025, end: 20081111
  41. DOCUSATE [Concomitant]
     Active Substance: DOCUSATE
     Dosage: 100 MG, AS NEEDED (AT BEDTIME AS NEEDED)
     Route: 048
     Dates: start: 20160113
  42. ATORVASTATIN [Concomitant]
     Active Substance: ATORVASTATIN
     Dosage: 80 MG, DAILY
     Route: 048
     Dates: start: 20061121
  43. LYRICA [Suspect]
     Active Substance: PREGABALIN
     Indication: OSTEOARTHRITIS
     Dosage: 50 MG, 3X/DAY (CAN INCREASE TO 100 MG THREE TIMES DAILY IF STILL HAVING PAIN)
     Route: 048
  44. FLEXERIL [Suspect]
     Active Substance: CYCLOBENZAPRINE HYDROCHLORIDE
     Indication: MUSCLE SPASMS
     Dosage: 10 MG, 1X/DAY (NIGHTLY)
     Route: 048
  45. CALCIUM 600 + D [Concomitant]
     Active Substance: CALCIUM\VITAMIN D
     Dosage: 1 DF, 3X/DAY (600 MG [1500MG])
     Route: 048
     Dates: start: 20160113
  46. ZETIA [Concomitant]
     Active Substance: EZETIMIBE
     Dosage: 10 MG, 1X/DAY (NIGHTLY)
     Route: 048
  47. GLUCOSAMINE + CHONDROITIN [Concomitant]
     Dosage: UNK
     Dates: start: 20160113
  48. ICOSAPENT ETHYL [Concomitant]
     Active Substance: ICOSAPENT ETHYL
     Dosage: 1000 MG, 2X/DAY
     Route: 048
  49. OXYCONTIN [Concomitant]
     Active Substance: OXYCODONE HYDROCHLORIDE
     Dosage: 30 MG, 2X/DAY (15MG, TAKE 2 TABLET TWICE DAILY)
     Route: 048
     Dates: start: 20131105, end: 20150306
  50. OXYCONTIN [Concomitant]
     Active Substance: OXYCODONE HYDROCHLORIDE
     Dosage: 20 MG, 2X/DAY (EVERY 12 HOURS)
     Route: 048
  51. BRILINTA [Concomitant]
     Active Substance: TICAGRELOR
     Dosage: 90 MG, 2X/DAY (CONTINUE FOR ONE YEAR (DRUG ELUTING STENT))
     Route: 048
  52. LIDODERM [Concomitant]
     Active Substance: LIDOCAINE
     Dosage: UNK UNK, DAILY (PLACE 1 PATCH ONTO THE SKIN)
  53. DULOXETINE HCL [Concomitant]
     Active Substance: DULOXETINE HYDROCHLORIDE
     Dosage: 60 MG, DAILY
     Route: 048
     Dates: start: 20140131
  54. HYDROCHLOROTHIAZIDE. [Concomitant]
     Active Substance: HYDROCHLOROTHIAZIDE
     Dosage: 25 MG, DAILY (EVERYDAY)
     Route: 048
     Dates: start: 20160113
  55. BENICAR [Concomitant]
     Active Substance: OLMESARTAN MEDOXOMIL
     Dosage: 40 MG, DAILY
     Route: 048
     Dates: start: 20130115, end: 20150211
  56. WELLBUTRIN SR [Concomitant]
     Active Substance: BUPROPION HYDROCHLORIDE
     Dosage: 150 MG, 2X/DAY
     Route: 048
     Dates: start: 20100423, end: 20130615
  57. VICODIN [Concomitant]
     Active Substance: ACETAMINOPHEN\HYDROCODONE BITARTRATE
     Indication: PAIN
     Dosage: 1 DF, AS NEEDED (1 TABLET EVERY 4 HOURS PRN) [(PARACETAMOL: 5 MG), (HYDROCODONE BITARTRATE: 500 MG)]
     Route: 048
     Dates: start: 20090720, end: 20090731
  58. VICODIN [Concomitant]
     Active Substance: ACETAMINOPHEN\HYDROCODONE BITARTRATE
     Dosage: 1 DF, AS NEEDED (1 TABLET EVERY 4 HOURS PRN) [(PARACETAMOL: 5 MG), (HYDROCODONE BITARTRATE: 500 MG)]
     Dates: start: 20090922, end: 20091222
  59. MELOXICAM. [Concomitant]
     Active Substance: MELOXICAM
     Dosage: 15 MG, DAILY (EVERY DAY WITH FOOD)
     Route: 048
     Dates: start: 20100113, end: 20120802
  60. METHOTREXATE. [Concomitant]
     Active Substance: METHOTREXATE
     Dosage: 10 MG, 1X/DAY (4 TAB BY MOUTH IN THE MORNING)
     Route: 048
     Dates: end: 20130115
  61. PERCOGESIC ORIGINAL STRENGTH [Concomitant]
     Active Substance: ACETAMINOPHEN\DIPHENHYDRAMINE
     Dosage: 2 DF, 1X/DAY (TWO TABLETS AT 11.30 PM)[(PHENYLTOLOXAMINE CITRATE: 30 MG), (PARACETAMOL: 325 MG)]
     Dates: start: 20090710, end: 20090818
  62. PIROXICAM. [Concomitant]
     Active Substance: PIROXICAM
     Dosage: 20 MG, AS NEEDED (1 CAPSULE DAILY)
     Route: 048
     Dates: start: 20071123, end: 20080811
  63. ULTRAM [Concomitant]
     Active Substance: TRAMADOL HYDROCHLORIDE
     Indication: PAIN
     Dosage: 50 MG, 4X/DAY (TAKE ONE TYLENOL 500MG DAILY WITH THE MORNING DOSE)
     Route: 048
     Dates: start: 20090713, end: 20090720
  64. MAGNESIUM [Concomitant]
     Active Substance: MAGNESIUM
     Dosage: 1.6-2.6 MG/DL
  65. CYCLOBENZAPRINE. [Concomitant]
     Active Substance: CYCLOBENZAPRINE
     Dosage: 10 MG, UNK(AT BEDTIME AS NEEDED)
     Route: 048
     Dates: start: 20160919
  66. LIORESAL [Concomitant]
     Active Substance: BACLOFEN
     Dosage: 10 MG, 3X/DAY (CAN INCREASE TO 2 PILLS THREE TIMES DAILY IF 1 PILL IS NOT WORKING)
     Route: 048
  67. GLUCOSAMINE + CHONDROITIN [Concomitant]
     Dosage: 1 DF, 2X/DAY [(GLUCOSAMINE SULFATE: 500 MG), (CHONDROITIN SULFATE: 400 MG)]
     Route: 048
  68. HYDRODIURIL [Concomitant]
     Active Substance: HYDROCHLOROTHIAZIDE
     Dosage: 25 MG, DAILY
     Route: 048
     Dates: start: 20160113
  69. NORCO [Concomitant]
     Active Substance: ACETAMINOPHEN\HYDROCODONE BITARTRATE
     Indication: PAIN
     Dosage: 1 DF, AS NEEDED (EVERY 6 (SIX) HOURS) [(HYDROCODONE BITARTRATE: 7.5 MG), (PARACETAMOL: 325 MG)]
     Route: 048
  70. PRINIVIL [Concomitant]
     Active Substance: LISINOPRIL
     Dosage: 20 MG, DAILY
  71. EVISTA [Concomitant]
     Active Substance: RALOXIFENE HYDROCHLORIDE
     Dosage: 60 MG, DAILY
     Route: 048
     Dates: start: 20060214, end: 20080811
  72. AMBIEN [Concomitant]
     Active Substance: ZOLPIDEM TARTRATE
     Indication: SLEEP DISORDER
     Dosage: 5 MG, AS NEEDED (NIGHTLY)
     Route: 048
  73. LIDODERM [Concomitant]
     Active Substance: LIDOCAINE
     Dosage: UNK (5% EXTERNAL PATCH) (APPLY AS DIRECTED)
     Dates: start: 20071123, end: 20080811
  74. LIDODERM [Concomitant]
     Active Substance: LIDOCAINE
     Dosage: UNK (ONE PATCH TO AFFECTED AREA 12 HOURS ON, 12 HOURS OFF)
     Dates: start: 20091109
  75. AMLODIPINE BESYLATE. [Concomitant]
     Active Substance: AMLODIPINE BESYLATE
     Dosage: 10 MG, DAILY
     Route: 048
     Dates: start: 20130605
  76. CYCLOBENZAPRINE HCL [Concomitant]
     Active Substance: CYCLOBENZAPRINE HYDROCHLORIDE
     Dosage: 10 MG, AS NEEDED
     Route: 048
     Dates: start: 20100611, end: 20130731
  77. HOMATROPINE [Concomitant]
     Active Substance: HOMATROPINE\HOMATROPINE HYDROBROMIDE
     Dosage: 1 GTT, 2X/DAY (5 %) (INTO THE OS )
     Dates: start: 20111024
  78. IBUPROFEN. [Concomitant]
     Active Substance: IBUPROFEN
     Dosage: 200 MG, AS NEEDED (TAKE 3 CAPSULE 4 TIMES EVERYDAY AS NEEDED)
     Route: 048
     Dates: start: 20160113
  79. LISINOPRIL. [Concomitant]
     Active Substance: LISINOPRIL
     Dosage: 20 MG, DAILY (EVERY DAY)
     Route: 048
     Dates: start: 20150211
  80. LORAZEPAM. [Concomitant]
     Active Substance: LORAZEPAM
     Dosage: 0.5 MG, AS NEEDED  (TAKE 1 TO 2 TABLETS BY MOUTH THREE TIMES DAILY)
     Route: 048
     Dates: start: 20050621, end: 20100423
  81. DILTIAZEM HCL [Concomitant]
     Active Substance: DILTIAZEM HYDROCHLORIDE
     Dosage: 240 MG, DAILY (ONE CAPSULE)
     Route: 048
     Dates: start: 20071123, end: 20080811
  82. HYZAAR [Concomitant]
     Active Substance: HYDROCHLOROTHIAZIDE\LOSARTAN POTASSIUM
     Dosage: 1 DF, 1X/DAY [(LOSARTAN POTASSIUM: 100MG), (HYDROCHLOROTHIAZIDE: 25 MG)]
     Route: 048
     Dates: end: 20110613
  83. HYZAAR [Concomitant]
     Active Substance: HYDROCHLOROTHIAZIDE\LOSARTAN POTASSIUM
     Dosage: 2 DF, 1X/DAY [(LOSARTAN POTASSIUM: 50MG), (HYDROCHLOROTHIAZIDE: 12.5 MG)]
     Route: 048
     Dates: start: 20080116, end: 20080331
  84. MEDROL [Concomitant]
     Active Substance: METHYLPREDNISOLONE
     Dosage: UNK (TAKE AS DIRECTED)
     Route: 048
     Dates: start: 20070608, end: 20070720
  85. NYSTATIN. [Concomitant]
     Active Substance: NYSTATIN
     Dosage: UNK (100000 UNIT/GM EXTERNAL CREAM)(APPLY 2-3 TIMES DAILY TO AFFECTED AREA(S))
     Dates: start: 20070417, end: 20090818
  86. NYSTATIN. [Concomitant]
     Active Substance: NYSTATIN
     Dosage: 10 ML, 4X/DAY (100000 UNIT/ML/ THROAT SUSPENSION SWISH + SWALLOW 10 ML FOUR TIMES DAILY X 7 DAYS)
     Dates: start: 20071203, end: 20080116
  87. PAXIL [Concomitant]
     Active Substance: PAROXETINE HYDROCHLORIDE
     Dosage: 20 MG, DAILY
     Route: 048
     Dates: start: 20091207, end: 20111122
  88. PROPOXYPHENE N/APAP [Concomitant]
     Active Substance: ACETAMINOPHEN\PROPOXYPHENE NAPSYLATE
     Dosage: 2 DF, 2X/DAY (TWO TABLETS)[(DEXTROPROPOXYPHENE NAPSILATE: 100 MG), (PARACETAMOL: 650MG)]
     Dates: start: 20090710, end: 20090713
  89. TEMAZEPAM. [Concomitant]
     Active Substance: TEMAZEPAM
     Indication: SLEEP DISORDER
     Dosage: 30 MG, AS NEEDED (AT BEDTIME)
     Route: 048
     Dates: start: 20050621, end: 20100423
  90. CYMBALTA [Suspect]
     Active Substance: DULOXETINE HYDROCHLORIDE
     Dosage: 60 MG, DAILY
     Route: 048
     Dates: start: 20160113
  91. FLEXERIL [Suspect]
     Active Substance: CYCLOBENZAPRINE HYDROCHLORIDE
     Indication: OSTEOARTHRITIS
  92. CALCIUM 600 + D [Concomitant]
     Active Substance: CALCIUM\VITAMIN D
     Dosage: 1 DF, 2X/DAY (600-200 MG-UNIT) (BID)
     Route: 048
     Dates: start: 20061025
  93. ZETIA [Concomitant]
     Active Substance: EZETIMIBE
     Dosage: 10 MG, DAILY
     Route: 048
  94. ZETIA [Concomitant]
     Active Substance: EZETIMIBE
     Dosage: 10 MG, DAILY
     Route: 048
     Dates: start: 20060912, end: 20110315
  95. PRINIVIL [Concomitant]
     Active Substance: LISINOPRIL
     Dosage: 30 MG, DAILY
     Route: 048
  96. ATIVAN [Concomitant]
     Active Substance: LORAZEPAM
     Indication: ANXIETY
     Dosage: 0.5 MG, AS NEEDED (1-2 TABLETS BY MOUTH EVERY EIGHT HOURS)
     Route: 048
  97. NITROSTAT [Concomitant]
     Active Substance: NITROGLYCERIN
     Indication: CHEST PAIN
     Dosage: 0.4 MG, AS NEEDED (PLACE 1 TABLET UNDER THE TONGUE EVERY 5 (FIVE) MINUTES)
     Route: 060
  98. BRILINTA [Concomitant]
     Active Substance: TICAGRELOR
     Dosage: 90 MG, 2X/DAY(TAKE 1 TABLET BY ORAL ROUTE 2 TIME EVERY DAY)
     Route: 048
     Dates: start: 20161121
  99. AMOXICILLIN. [Concomitant]
     Active Substance: AMOXICILLIN
     Dosage: 2000 MG, DAILY (FOUR (4) TABLETS ONE HOUR PRIOR TO DENTAL CLEANING)
     Route: 048
     Dates: start: 20091110
  100. LORAZEPAM. [Concomitant]
     Active Substance: LORAZEPAM
     Indication: ANXIETY
     Dosage: 0.5 MG, AS NEEDED (TAKE 1 TO 2 TABLETS BY MOUTH THREE TIMES DAILY)
     Route: 048
     Dates: start: 20100611
  101. METAMUCIL [Concomitant]
     Active Substance: PLANTAGO SEED
     Dosage: UNK
     Dates: start: 20081111
  102. PREDNISOLONE ACETATE. [Concomitant]
     Active Substance: PREDNISOLONE ACETATE
     Dosage: 1 GTT, UNK (1 % OPHTHALMIC SUSPENSION)(Q HOUR)
     Dates: start: 20111024
  103. ZOLPIDEM TARTRATE. [Concomitant]
     Active Substance: ZOLPIDEM TARTRATE
     Indication: SLEEP DISORDER
     Dosage: 5 MG, AS NEEDED (AT BEDTIME)
     Route: 048
     Dates: start: 20130115
  104. ACIPHEX [Concomitant]
     Active Substance: RABEPRAZOLE SODIUM
     Dosage: 20 MG, DAILY (EVERY DAY)
     Route: 048
     Dates: start: 20110304, end: 20150211
  105. AMOXICILLIN. [Concomitant]
     Active Substance: AMOXICILLIN
     Indication: PAROTITIS
     Dosage: 500 MG, 3X/DAY
     Route: 048
     Dates: start: 20071123, end: 20080811
  106. AMOXICILLIN. [Concomitant]
     Active Substance: AMOXICILLIN
     Dosage: 500 MG, 2X/DAY (FOR 7 DAYS FOR PAROTITIS, ALTERNATE WITH AMOXICILLIN)
     Dates: start: 20160113
  107. CINNAMON. [Concomitant]
     Active Substance: CINNAMON
     Dosage: UNK
     Dates: end: 20130917
  108. CRESTOR [Concomitant]
     Active Substance: ROSUVASTATIN CALCIUM
     Dosage: 10 MG, DAILY (EVERY DAY)
     Route: 048
     Dates: start: 20071123, end: 20150211
  109. DILTIAZEM HCL [Concomitant]
     Active Substance: DILTIAZEM HYDROCHLORIDE
     Dosage: 240 MG, DAILY (ONE CAPSULE)
     Route: 048
     Dates: start: 20050621, end: 20130213
  110. FISH OIL [Concomitant]
     Active Substance: FISH OIL
     Dosage: UNK (AS DIRECTED)
     Dates: start: 20061025, end: 20130917
  111. HUMIRA [Concomitant]
     Active Substance: ADALIMUMAB
     Dosage: 40 MG/0.8 ML, INJECT ONE PEN EVERY OTHER WEEK
     Route: 058
     Dates: start: 20161121
  112. LATISSE [Concomitant]
     Active Substance: BIMATOPROST
     Dosage: UNK, 1X/DAY(0.03%EXTERNAL SOLUTION)(BLOT EXCESS REPEAT WITH STERILE APPLICATOR ON OTHER EYELID)
     Dates: start: 20110330, end: 20110613
  113. LOSARTAN POTASSIUM. [Concomitant]
     Active Substance: LOSARTAN POTASSIUM
     Dosage: 100 MG, 2X/DAY
     Route: 048
     Dates: start: 20110829, end: 20130917
  114. LOSARTAN POTASSIUM. [Concomitant]
     Active Substance: LOSARTAN POTASSIUM
     Dosage: 100 MG, 1X/DAY (QD)
     Route: 048
     Dates: start: 20110228
  115. METHOTREXATE. [Concomitant]
     Active Substance: METHOTREXATE
     Dosage: 10 MG, WEEKLY (4 TAB AT SUPPER ON ONE DAY PER WEEK)
     Route: 048
     Dates: end: 20130115
  116. MYCOPHENOLATE MOFETIL. [Concomitant]
     Active Substance: MYCOPHENOLATE MOFETIL
     Dosage: 1000 MG, 2X/DAY (2 TABLETS TWICE DAILY)
     Route: 048
     Dates: start: 20121105, end: 20130605
  117. OMNIPRED [Concomitant]
     Active Substance: PREDNISOLONE ACETATE
     Dosage: 1 GTT, 2X/DAY
     Route: 047
     Dates: start: 20160113
  118. TYLENOL [Concomitant]
     Active Substance: ACETAMINOPHEN
     Dosage: 650 MG, 1X/DAY (TWO TABLET EVERY MORNING)
     Route: 048
     Dates: start: 20090710, end: 20090818
  119. VITAMIN D [Concomitant]
     Active Substance: CHOLECALCIFEROL
     Dosage: 2000 IU, DAILY (EVERY DAY)
     Route: 048
     Dates: start: 20090821, end: 20091222
  120. DULCOLAX (BISACODYL) [Concomitant]
     Active Substance: BISACODYL
     Dosage: 100 MG, UNK(EVERY DAY AT BED TIME)
     Route: 048
     Dates: start: 20160113
  121. LYRICA [Suspect]
     Active Substance: PREGABALIN
     Indication: ANKYLOSING SPONDYLITIS
     Dosage: 100 MG, 3X/DAY
     Route: 048
     Dates: start: 20170407
  122. CYMBALTA [Suspect]
     Active Substance: DULOXETINE HYDROCHLORIDE
     Dosage: UNK
  123. FLEXERIL [Suspect]
     Active Substance: CYCLOBENZAPRINE HYDROCHLORIDE
     Indication: ANKYLOSING SPONDYLITIS
  124. CALCIUM 600 + D [Concomitant]
     Active Substance: CALCIUM\VITAMIN D
     Dosage: UNK
  125. VOLTAREN [Concomitant]
     Active Substance: DICLOFENAC SODIUM
     Dosage: 2 G, 4X/DAY (1 %)
     Route: 061
  126. COLACE [Concomitant]
     Active Substance: DOCUSATE SODIUM
     Dosage: 300 MG, 1X/DAY (100MG CAPSULE, 300MG NIGHTLY)
     Route: 048
  127. HYDRODIURIL [Concomitant]
     Active Substance: HYDROCHLOROTHIAZIDE
     Dosage: 25 MG, DAILY
     Route: 048
  128. GLUCOPHAGE XR [Concomitant]
     Active Substance: METFORMIN HYDROCHLORIDE
     Dosage: 500 MG, 2X/DAY (WITH MEALS)
     Route: 048
  129. OXYCONTIN [Concomitant]
     Active Substance: OXYCODONE HYDROCHLORIDE
     Dosage: 15 MG, 2X/DAY (TAKE 1 TABLET BY ORAL ROUTE EVERY 12 HOURS)
     Route: 048
     Dates: start: 20160113
  130. KAY CIEL [Concomitant]
     Active Substance: POTASSIUM CHLORIDE
     Dosage: 15 ML, DAILY (20 MEQ/15 ML (10%) SOLUTION)
     Route: 048
  131. EVISTA [Concomitant]
     Active Substance: RALOXIFENE HYDROCHLORIDE
     Dosage: 60 MG, DAILY (EVERY DAY)
     Route: 048
     Dates: start: 20071123
  132. CHOLECALCIFEROL [Concomitant]
     Active Substance: CHOLECALCIFEROL
     Dosage: 2000 IU, DAILY
     Route: 048
  133. LIDODERM [Concomitant]
     Active Substance: LIDOCAINE
     Dosage: 5 %, DAILY(EVERY DAY DAILY MAYWEAR UP TO 12 HOURS)
     Route: 062
     Dates: start: 20160113
  134. LISINOPRIL. [Concomitant]
     Active Substance: LISINOPRIL
     Dosage: 20 MG, DAILY
     Route: 048
     Dates: start: 20160113
  135. LORAZEPAM. [Concomitant]
     Active Substance: LORAZEPAM
     Dosage: 0.5 MG, AS NEEDED (TAKE 3 TABLET EVERY BEDTIME AS NEEDED)
     Route: 048
     Dates: start: 20160113
  136. RALOXIFENE HCL [Concomitant]
     Active Substance: RALOXIFENE
     Dosage: 60 MG, 1X/DAY
     Route: 048
     Dates: start: 20140616
  137. STOOL SOFTENER (DOCUSATE) [Concomitant]
     Active Substance: DOCUSATE
     Dosage: 3 DF, DAILY
     Dates: start: 20081111
  138. AMITRIPTYLINE HCL [Concomitant]
     Active Substance: AMITRIPTYLINE
     Dosage: 1 DF, AS NEEDED (TWICE DAILY)
     Dates: start: 20071123, end: 20080811
  139. ASPIRIN. [Concomitant]
     Active Substance: ASPIRIN
     Dosage: 81 MG, DAILY
     Route: 048
     Dates: start: 20061025, end: 20080811
  140. FOLIC ACID. [Concomitant]
     Active Substance: FOLIC ACID
     Dosage: 1 MG, DAILY
     Route: 048
     Dates: end: 20130605
  141. LOSARTAN POTASSIUM AND HYDROCHLOROTHIAZIDE [Concomitant]
     Active Substance: HYDROCHLOROTHIAZIDE\LOSARTAN POTASSIUM
     Dosage: 1 DF, DAILY [(LOSARTAN POTASSIUM: 100MG), (HYDROCHLOROTHIAZIDE: 25 MG)]
     Route: 048
     Dates: start: 20100826, end: 20111019
  142. OMNIPRED [Concomitant]
     Active Substance: PREDNISOLONE ACETATE
     Dosage: UNK (1 % OPHTHALMIC SUSPENSION)
     Route: 048
     Dates: end: 20130605
  143. PROPOXYPHENE N/APAP [Concomitant]
     Active Substance: ACETAMINOPHEN\PROPOXYPHENE NAPSYLATE
     Indication: PAIN
     Dosage: 1 DF, AS NEEDED (1 TABLET EVERY 4 HOURS)[(DEXTROPROPOXYPHENE NAPSILATE: 100 MG), (PARACETAMOL: 650MG
     Dates: start: 20050607, end: 20090710
  144. TYLENOL [Concomitant]
     Active Substance: ACETAMINOPHEN
     Indication: PAIN
     Dosage: UNK (AS DIRECTED)
     Route: 048
     Dates: start: 20061025, end: 20090710
  145. EZETIMIBE. [Concomitant]
     Active Substance: EZETIMIBE
     Dosage: 10 MG, DAILY
     Route: 048
     Dates: start: 20161121
  146. FLEXERIL [Suspect]
     Active Substance: CYCLOBENZAPRINE HYDROCHLORIDE
     Indication: PAIN
     Dosage: 5 MG, AS NEEDED (3 (THREE) TIMES DAILY)
     Route: 048
  147. ZEBETA [Concomitant]
     Active Substance: BISOPROLOL FUMARATE
     Dosage: 7.5 MG, DAILY (5MG, 1.5 TABLETS)
     Route: 048
  148. HUMIRA [Concomitant]
     Active Substance: ADALIMUMAB
     Dosage: 40 MG, UNK (40 MG/0.8ML PNKT) (40 MG INTO THE SKIN EVERY 14 (FOURTEEN) DAYS)
     Route: 058
  149. NEURONTIN [Concomitant]
     Active Substance: GABAPENTIN
     Dosage: 100 MG, 3X/DAY
     Route: 048
  150. HYDROCHLOROTHIAZIDE. [Concomitant]
     Active Substance: HYDROCHLOROTHIAZIDE
     Dosage: 25 MG, DAILY (EVERY DAY)
     Route: 048
     Dates: start: 20110829
  151. RABEPRAZOLE SODIUM. [Concomitant]
     Active Substance: RABEPRAZOLE SODIUM
     Dosage: 20 MG, DAILY
     Route: 048
     Dates: start: 20140610
  152. AMITRIPTYLINE HCL [Concomitant]
     Active Substance: AMITRIPTYLINE
     Dosage: 40 MG, 1X/DAY (AT BEDTIME)
     Route: 048
     Dates: start: 20050621, end: 20130917
  153. KEFLEX [Concomitant]
     Active Substance: CEPHALEXIN
     Dosage: 500 MG, 3X/DAY
     Route: 048
  154. FLUVIRIN NOS [Concomitant]
     Active Substance: INFLUENZA VIRUS VACCINE
     Dosage: UNK
     Dates: end: 20110613
  155. NABUMETONE. [Concomitant]
     Active Substance: NABUMETONE
     Dosage: 750 MG, 2X/DAY
     Route: 048
     Dates: end: 20131120
  156. OMEPRAZOLE. [Concomitant]
     Active Substance: OMEPRAZOLE
     Dosage: 40 MG, DAILY
     Route: 048
     Dates: start: 20110105, end: 20110211
  157. PERCOGESIC ORIGINAL STRENGTH [Concomitant]
     Active Substance: ACETAMINOPHEN\DIPHENHYDRAMINE
     Dosage: UNK [(PHENYLTOLOXAMINE CITRATE: 30 MG), (PARACETAMOL: 325 MG)]
     Dates: start: 20071123, end: 20090710
  158. TEMAZEPAM. [Concomitant]
     Active Substance: TEMAZEPAM
     Dosage: 30 MG, AS NEEDED (AT BEDTIME)
     Route: 048
     Dates: start: 20071123, end: 20111018
  159. CYMBALTA [Suspect]
     Active Substance: DULOXETINE HYDROCHLORIDE
     Indication: PAIN
     Dosage: UNK (30MG ONE CAPSULE BY MOUTH EVERY EVENING (TAKE 60 MG IN THE MORNING))
     Route: 048
     Dates: start: 20120109, end: 20140226
  160. CALCIUM 600 + D [Concomitant]
     Active Substance: CALCIUM\VITAMIN D
     Dosage: 1 DF, 3X/DAY (600-200 MG-UNIT) (BID)
     Route: 048
     Dates: start: 20160113
  161. ZETIA [Concomitant]
     Active Substance: EZETIMIBE
     Dosage: 10 MG, UNK(EVERY DAY)
     Dates: start: 20161221
  162. HUMIRA [Concomitant]
     Active Substance: ADALIMUMAB
     Dosage: UNK (40MG/0.8ML/ INJECT ONE PEN EVERY OTHER WEEK)
     Route: 058
     Dates: start: 20161121
  163. ATIVAN [Concomitant]
     Active Substance: LORAZEPAM
     Dosage: 3 DF, UNK(0.5 MG)(EVERYBED TIME AS NEEDED)
     Route: 048
     Dates: start: 20160113
  164. MAG-OX [Concomitant]
     Active Substance: MAGNESIUM OXIDE
     Dosage: 400 MG, DAILY (400 (241.3 MG) MG TABS)
     Route: 048
  165. ATORVASTATIN CALCIUM. [Concomitant]
     Active Substance: ATORVASTATIN CALCIUM
     Dosage: 20 MG, 1X/DAY (AT BEDTIME)
     Route: 048
     Dates: start: 20150211
  166. CYCLOBENZAPRINE HCL [Concomitant]
     Active Substance: CYCLOBENZAPRINE HYDROCHLORIDE
     Indication: MUSCLE SPASMS
     Dosage: 10 MG, UNK
     Route: 048
  167. DULOXETINE HCL [Concomitant]
     Active Substance: DULOXETINE HYDROCHLORIDE
     Dosage: 30 MG, UNK
     Route: 048
     Dates: start: 20140131, end: 20140521
  168. HYDROCODONE BITARTRATE AND ACETAMINOPHEN [Concomitant]
     Active Substance: ACETAMINOPHEN\HYDROCODONE BITARTRATE
     Indication: PAIN
     Dosage: 1 DF, AS NEEDED (4 TIMES DAILY ) [(PARACETAMOL: 7.5 MG), (HYDROCODONE BITARTRATE: 500 MG)]
     Dates: start: 20091207
  169. HYDROCODONE BITARTRATE AND ACETAMINOPHEN [Concomitant]
     Active Substance: ACETAMINOPHEN\HYDROCODONE BITARTRATE
     Dosage: 1 DF, DAILY ([HYDROCODONE BITARTRATE: 7.5MG]/ [ACETAMINOPHEN: 325MG])
     Route: 048
     Dates: start: 20160113
  170. METFORMIN HCL [Concomitant]
     Active Substance: METFORMIN HYDROCHLORIDE
     Dosage: 500 MG, 2X/DAY (WITH MEALS)
     Dates: start: 20120813
  171. OMEPRAZOLE. [Concomitant]
     Active Substance: OMEPRAZOLE
     Dosage: 20 MG, 1X/DAY
     Route: 048
     Dates: start: 20150211
  172. TRIAMCINOLONE ACETONIDE. [Concomitant]
     Active Substance: TRIAMCINOLONE ACETONIDE
     Dosage: UNK(2 TIMES EVERY DAY A THIN LAYER TO AFFECTED AREA)
     Route: 061
     Dates: start: 20160113
  173. ACIPHEX [Concomitant]
     Active Substance: RABEPRAZOLE SODIUM
     Dosage: 20 MG, DAILY
     Route: 048
     Dates: start: 20060912, end: 20101206
  174. ANTACID [Concomitant]
     Active Substance: ALUMINUM HYDROXIDE\CALCIUM CARBONATE\DIMETHICONE\MAGNESIUM HYDROXIDE
     Dosage: 1 DF, 1X/DAY (1 TABLET)
     Route: 048
     Dates: start: 20061025, end: 20090818
  175. ASPIRIN. [Concomitant]
     Active Substance: ASPIRIN
     Dosage: 81 MG, DAILY
     Route: 048
     Dates: start: 20071123, end: 20130605
  176. BENICAR [Concomitant]
     Active Substance: OLMESARTAN MEDOXOMIL
     Dosage: 40 MG, DAILY
     Route: 048
     Dates: start: 20160113
  177. CALCIUM +VIT D [Concomitant]
     Active Substance: CALCIUM\VITAMIN D
     Dosage: 1 DF, 1X/DAY
     Dates: start: 20071123, end: 20080811
  178. CRESTOR [Concomitant]
     Active Substance: ROSUVASTATIN CALCIUM
     Dosage: 10 MG, DAILY
     Route: 048
     Dates: start: 20080811, end: 20081111
  179. HUMIRA [Concomitant]
     Active Substance: ADALIMUMAB
     Dosage: UNK
     Dates: end: 20140226
  180. LATISSE [Concomitant]
     Active Substance: BIMATOPROST
     Dosage: UNK, 1X/DAY(0.03% EXTERNAL SOLUTION)(APPLY NIGHTLY TO CLEAN UPPER CYCLID MARGIN AT BASE OF LASHES)
     Dates: start: 20110330, end: 20110613
  181. PIROXICAM. [Concomitant]
     Active Substance: PIROXICAM
     Dosage: 20 MG, DAILY (DAILY WITH FOOD)
     Route: 048
     Dates: start: 20050607, end: 20100113
  182. PRAVACHOL [Concomitant]
     Active Substance: PRAVASTATIN SODIUM
     Dosage: 80 MG, DAILY
     Route: 048
     Dates: start: 20061129, end: 20070608
  183. PROPOXYPHENE. [Concomitant]
     Active Substance: PROPOXYPHENE
     Dosage: UNK
     Dates: start: 20071123, end: 20080811
  184. TURMERIC [Concomitant]
     Active Substance: HERBALS\TURMERIC
     Dosage: UNK
     Dates: end: 20130917
  185. PANTOPRAZOLE [Concomitant]
     Active Substance: PANTOPRAZOLE
     Dosage: 40 MG, DAILY
     Route: 048
     Dates: start: 20161108

REACTIONS (26)
  - Uveitis [Unknown]
  - Chronic kidney disease [Unknown]
  - Red cell distribution width increased [Unknown]
  - Rash [Unknown]
  - Blood chloride decreased [Unknown]
  - Sacroiliitis [Unknown]
  - Cataract [Unknown]
  - Eye pain [Unknown]
  - Paronychia [Unknown]
  - Sinusitis [Unknown]
  - Mean cell haemoglobin concentration decreased [Unknown]
  - Arthralgia [Unknown]
  - Osteoarthritis [Unknown]
  - Chills [Unknown]
  - Cardiomyopathy [Unknown]
  - Blood glucose increased [Unknown]
  - Exostosis [Unknown]
  - Blood bilirubin decreased [Unknown]
  - Ocular hyperaemia [Unknown]
  - Osteoarthritis [Unknown]
  - Blood urea increased [Unknown]
  - Back pain [Unknown]
  - Nausea [Unknown]
  - Myocardial infarction [Unknown]
  - Pyrexia [Unknown]
  - White blood cell count increased [Unknown]

NARRATIVE: CASE EVENT DATE: 20160113
